FAERS Safety Report 11213443 (Version 1)
Quarter: 2015Q2

REPORT INFORMATION
  Report Type: Spontaneous
  Country: FR (occurrence: FR)
  Receive Date: 20150623
  Receipt Date: 20150623
  Transmission Date: 20150821
  Serious: Yes (Hospitalization)
  Sender: FDA-Public Use
  Company Number: FR-ASTRAZENECA-2015SE59948

PATIENT
  Age: 87 Year
  Sex: Female

DRUGS (15)
  1. COVERSYL [Suspect]
     Active Substance: PERINDOPRIL
     Indication: HYPERTENSION
     Route: 048
     Dates: start: 201406, end: 201504
  2. PROPRANOLOL [Concomitant]
     Active Substance: PROPRANOLOL\PROPRANOLOL HYDROCHLORIDE
  3. AMLODIPINE [Suspect]
     Active Substance: AMLODIPINE BESYLATE
     Indication: HYPERTENSION
     Dosage: NON AZ
     Route: 048
     Dates: start: 201406, end: 201504
  4. APIXABAN [Concomitant]
     Active Substance: APIXABAN
  5. DIPROSONE [Concomitant]
     Active Substance: BETAMETHASONE DIPROPIONATE
  6. LYRICA [Concomitant]
     Active Substance: PREGABALIN
  7. DEROXAT [Concomitant]
     Active Substance: PAROXETINE HYDROCHLORIDE
  8. LASILIX [Concomitant]
     Active Substance: FUROSEMIDE
  9. TAHOR [Concomitant]
     Active Substance: ATORVASTATIN CALCIUM
  10. DIFFU K [Concomitant]
     Active Substance: POTASSIUM CHLORIDE
  11. NERISONE [Concomitant]
     Active Substance: DIFLUCORTOLONE VALERATE
  12. TIMOPTOL [Concomitant]
     Active Substance: TIMOLOL
  13. UVEDOSE [Concomitant]
     Active Substance: CHOLECALCIFEROL
  14. INEXIUM [Suspect]
     Active Substance: ESOMEPRAZOLE
     Route: 048
     Dates: start: 201406, end: 201504
  15. GLYCEROL\PARAFFIN [Concomitant]
     Active Substance: GLYCERIN\PARAFFIN

REACTIONS (7)
  - Toxic skin eruption [Recovering/Resolving]
  - Eosinophilia [Recovered/Resolved]
  - Body temperature increased [Unknown]
  - Hyperthyroidism [Unknown]
  - Psoriasis [Unknown]
  - Rash papular [Recovering/Resolving]
  - Erythema [Recovering/Resolving]

NARRATIVE: CASE EVENT DATE: 201410
